FAERS Safety Report 9742819 (Version 2)
Quarter: 2013Q4

REPORT INFORMATION
  Report Type: Spontaneous
  Country: US (occurrence: KP)
  Receive Date: 20131210
  Receipt Date: 20131218
  Transmission Date: 20140711
  Serious: Yes (Hospitalization)
  Sender: FDA-Public Use
  Company Number: KP-FRI-1000051983

PATIENT
  Age: 59 Year
  Sex: Male
  Weight: 42 kg

DRUGS (17)
  1. ROFLUMILAST [Suspect]
     Indication: CHRONIC OBSTRUCTIVE PULMONARY DISEASE
     Dosage: 500 MCG
     Route: 048
     Dates: start: 20130620
  2. SURFOLASE CAP [Concomitant]
     Dates: start: 20080103
  3. AMIPINE TAB [Concomitant]
     Dates: start: 20130620
  4. MEPTIN TAB [Concomitant]
     Dates: start: 20110221
  5. HOKUNALIN PATCH [Concomitant]
     Dates: start: 20080103
  6. FOSTER 100/6 HFA [Concomitant]
     Dates: start: 20120607
  7. ONBREZ BREEZHALER [Concomitant]
     Dates: start: 20130418
  8. SINGULAR [Concomitant]
     Dates: start: 20120503
  9. SYNATURA SYRUP [Concomitant]
     Dates: start: 20120112
  10. SPIRIVA RESPIMAT [Concomitant]
     Dates: start: 20120112
  11. ISO MACK RETARD CAPS [Concomitant]
     Dates: start: 20110221
  12. ZOLMIN TABS [Concomitant]
     Dates: start: 20100527
  13. ENAFON TAB [Concomitant]
     Dates: start: 20110526
  14. XANAX [Concomitant]
     Dates: start: 20120816
  15. PMS NYSTATIN SYRUP [Concomitant]
     Dates: start: 20130418
  16. PERIDOL [Concomitant]
     Dates: start: 20131017
  17. BERASIL C.TAB [Concomitant]
     Dates: start: 20120503

REACTIONS (2)
  - Mental disorder [Recovered/Resolved with Sequelae]
  - Dyspnoea [Recovered/Resolved with Sequelae]
